FAERS Safety Report 18018470 (Version 5)
Quarter: 2022Q3

REPORT INFORMATION
  Report Type: Spontaneous
  Country: JP (occurrence: JP)
  Receive Date: 20200714
  Receipt Date: 20220713
  Transmission Date: 20221027
  Serious: Yes (Other)
  Sender: FDA-Public Use
  Company Number: JP-GSKNCCC-CASE-00981693_AE-31030

PATIENT

DRUGS (24)
  1. ATOVAQUONE [Suspect]
     Active Substance: ATOVAQUONE
     Indication: Prophylaxis
     Dosage: 10 ML, QD
     Route: 048
     Dates: start: 20200604
  2. VALSARTAN [Suspect]
     Active Substance: VALSARTAN
     Indication: Hypertension
     Dosage: 80 MG, QD
     Route: 048
  3. ROCALTROL [Concomitant]
     Active Substance: CALCITRIOL
     Dosage: 0.25 UG, QD
     Route: 048
     Dates: start: 20190629
  4. MINOCYCLINE HYDROCHLORIDE [Concomitant]
     Active Substance: MINOCYCLINE HYDROCHLORIDE
     Dosage: 100 MG, BID
  5. ROXITHROMYCIN [Concomitant]
     Active Substance: ROXITHROMYCIN
     Dosage: UNK
     Dates: end: 20200629
  6. DAIPHEN COMBINATION TABLETS [Concomitant]
     Dosage: UNK
     Dates: end: 20200603
  7. BETAMETHASONE TABLET [Concomitant]
     Dosage: 0.5 MG
  8. BETAMETHASONE TABLET [Concomitant]
     Dosage: 3.0 MG, BID
     Dates: start: 20200630
  9. PREDNISOLONE [Concomitant]
     Active Substance: PREDNISOLONE
     Dosage: 30 MG, BID
     Route: 048
  10. PREDNISOLONE [Concomitant]
     Active Substance: PREDNISOLONE
     Dosage: 60 MG, 1D
     Dates: start: 20200707
  11. ELIQUIS [Concomitant]
     Active Substance: APIXABAN
     Dosage: 5 MG, BID
     Route: 048
  12. FEXOFENADINE HYDROCHLORIDE [Concomitant]
     Active Substance: FEXOFENADINE HYDROCHLORIDE
     Dosage: 60 MG, BID
     Route: 048
  13. FAMOTIDINE [Concomitant]
     Active Substance: FAMOTIDINE
     Dosage: 20 MG, QD
     Route: 048
  14. ADONA TABLETS (CARBAZOCHROME SODIUM SULFONATE) [Concomitant]
     Dosage: 30 MG, TID
     Route: 048
  15. TRANSAMIN [Concomitant]
     Active Substance: TRANEXAMIC ACID
     Dosage: 250 MG, TID
     Route: 048
  16. AMLODIPINE BESYLATE [Concomitant]
     Active Substance: AMLODIPINE BESYLATE
     Dosage: 5 MG, QD
     Route: 048
  17. NIFEDIPINE CR TABLETS [Concomitant]
     Dosage: 20 MG, QD
     Route: 048
  18. E KEPPRA TABLETS [Concomitant]
     Dosage: 500 MG, BID
     Route: 048
  19. FLAVITAN TABLET [Concomitant]
     Dosage: 5 MG, TID
     Route: 048
  20. PYDOXAL TABLET [Concomitant]
     Dosage: 10 MG, TID
     Route: 048
  21. URSODEOXYCHOLIC ACID TABLETS [Concomitant]
     Dosage: 100 MG, TID
     Route: 048
  22. GLYCYRON TABLETS [Concomitant]
     Dosage: 1 DF, TID
     Route: 048
  23. TARCEVA [Concomitant]
     Active Substance: ERLOTINIB HYDROCHLORIDE
     Dosage: 150 MG, QD
     Route: 048
  24. MIYA-BM [Concomitant]
     Active Substance: CLOSTRIDIUM BUTYRICUM SPORES STRAIN M-55
     Dosage: 40 MG, TID
     Route: 048

REACTIONS (1)
  - Hyperkalaemia [Recovering/Resolving]

NARRATIVE: CASE EVENT DATE: 20200702
